FAERS Safety Report 25650265 (Version 2)
Quarter: 2025Q3

REPORT INFORMATION
  Report Type: Report from Study
  Country: EU (occurrence: EU)
  Receive Date: 20250806
  Receipt Date: 20250819
  Transmission Date: 20251021
  Serious: Yes (Death)
  Sender: ABBVIE
  Company Number: EU-ABBVIE-6402525

PATIENT
  Age: 72 Year
  Sex: Male

DRUGS (13)
  1. FOSCARBIDOPA\FOSLEVODOPA [Suspect]
     Active Substance: FOSCARBIDOPA\FOSLEVODOPA
     Indication: Parkinson^s disease
     Route: 058
     Dates: end: 20250730
  2. FOSCARBIDOPA\FOSLEVODOPA [Suspect]
     Active Substance: FOSCARBIDOPA\FOSLEVODOPA
     Route: 058
     Dates: start: 20241120
  3. REQUIP [Concomitant]
     Active Substance: ROPINIROLE HYDROCHLORIDE
     Indication: Parkinson^s disease
  4. REQUIP [Concomitant]
     Active Substance: ROPINIROLE HYDROCHLORIDE
     Indication: Parkinson^s disease
  5. PANTOPRAZOLE [Concomitant]
     Active Substance: PANTOPRAZOLE
     Indication: Product used for unknown indication
  6. RIVOTRIL [Concomitant]
     Active Substance: CLONAZEPAM
     Indication: Product used for unknown indication
  7. APOMORPHINE HYDROCHLORIDE [Concomitant]
     Active Substance: APOMORPHINE HYDROCHLORIDE
     Indication: Product used for unknown indication
  8. AMANTADINE HYDROCHLORIDE [Concomitant]
     Active Substance: AMANTADINE HYDROCHLORIDE
     Indication: Parkinson^s disease
  9. STALEVO [Concomitant]
     Active Substance: CARBIDOPA\ENTACAPONE\LEVODOPA
     Indication: Product used for unknown indication
  10. RIVASTIGMINE [Concomitant]
     Active Substance: RIVASTIGMINE
     Indication: Dementia
  11. ETHYL LOFLAZEPATE [Concomitant]
     Active Substance: ETHYL LOFLAZEPATE
     Indication: Product used for unknown indication
  12. XADAGO [Concomitant]
     Active Substance: SAFINAMIDE MESYLATE
     Indication: Parkinson^s disease
  13. STALEVO [Concomitant]
     Active Substance: CARBIDOPA\ENTACAPONE\LEVODOPA
     Indication: Product used for unknown indication

REACTIONS (1)
  - Death [Fatal]

NARRATIVE: CASE EVENT DATE: 20250730
